FAERS Safety Report 4979564-5 (Version None)
Quarter: 2006Q2

REPORT INFORMATION
  Report Type: 
  Country: None (occurrence: None)
  Receive Date: 20060421
  Receipt Date: 20051221
  Transmission Date: 20061013
  Serious: Yes (Other)
  Sender: FDA-Public Use
  Company Number: US-ROCHE-439612

PATIENT
  Age: 16 Year
  Sex: Female
  Weight: 59 kg

DRUGS (4)
  1. ACCUTANE [Suspect]
     Indication: ACNE
     Dosage: ALTERNATING 40/80MG PER DAY
     Route: 048
     Dates: start: 19941216, end: 19950502
  2. ACCUTANE [Suspect]
     Dosage: ALTERNATING 40/80MG PER DAY
     Route: 048
     Dates: start: 19960726, end: 19961127
  3. ACCUTANE [Suspect]
     Route: 048
     Dates: start: 19971129, end: 19980215
  4. ORTHO TRI-CYCLEN [Concomitant]
     Route: 048

REACTIONS (20)
  - ALOPECIA [None]
  - ARTHRALGIA [None]
  - AUTOIMMUNE DISORDER [None]
  - BULIMIA NERVOSA [None]
  - CHRONIC FATIGUE SYNDROME [None]
  - COLITIS ULCERATIVE [None]
  - CYSTITIS INTERSTITIAL [None]
  - DEPRESSION [None]
  - FIBROMYALGIA [None]
  - INFLAMMATORY BOWEL DISEASE [None]
  - INTESTINAL OBSTRUCTION [None]
  - LONG QT SYNDROME [None]
  - NEUROPATHY [None]
  - POLYCYSTIC OVARIES [None]
  - POSTPARTUM DEPRESSION [None]
  - RESTLESSNESS [None]
  - SUICIDAL IDEATION [None]
  - SYSTEMIC LUPUS ERYTHEMATOSUS [None]
  - VAGINAL CANDIDIASIS [None]
  - VAGINITIS BACTERIAL [None]
